FAERS Safety Report 25573128 (Version 3)
Quarter: 2025Q3

REPORT INFORMATION
  Report Type: Spontaneous
  Country: US (occurrence: US)
  Receive Date: 20250717
  Receipt Date: 20250916
  Transmission Date: 20251020
  Serious: No
  Sender: JOHNSON AND JOHNSON
  Company Number: US-JNJFOC-20250718253

PATIENT
  Sex: Female

DRUGS (1)
  1. TREMFYA [Suspect]
     Active Substance: GUSELKUMAB
     Indication: Product used for unknown indication
     Route: 065

REACTIONS (6)
  - Product dose omission issue [Unknown]
  - General physical health deterioration [Unknown]
  - Hypokinesia [Unknown]
  - Accidental exposure to product [Unknown]
  - Device leakage [Unknown]
  - Pain [Unknown]
